FAERS Safety Report 16757024 (Version 5)
Quarter: 2025Q4

REPORT INFORMATION
  Report Type: Report from Study
  Country: US (occurrence: None)
  Receive Date: 20190829
  Receipt Date: 20251127
  Transmission Date: 20260118
  Serious: Yes (Congenital Anomaly)
  Sender: UCB
  Company Number: US-UCBSA-2019035430

PATIENT
  Age: 1 Day
  Weight: 2.75 kg

DRUGS (12)
  1. CERTOLIZUMAB PEGOL [Suspect]
     Active Substance: CERTOLIZUMAB PEGOL
     Indication: Psoriatic arthropathy
     Dosage: 400 MILLIGRAM, EV 2 WEEKS(QOW)
  2. CERTOLIZUMAB PEGOL [Suspect]
     Active Substance: CERTOLIZUMAB PEGOL
     Indication: Psoriasis
     Dosage: 200 MILLIGRAM, EV 2 WEEKS(QOW)
  3. ADDERALL [Concomitant]
     Active Substance: AMPHETAMINE ASPARTATE\AMPHETAMINE SULFATE\DEXTROAMPHETAMINE SACCHARATE\DEXTROAMPHETAMINE SULFATE
     Indication: Attention deficit hyperactivity disorder
     Dosage: 15 MILLIGRAM, ONCE DAILY (QD)
  4. DIETARY SUPPLEMENT [Concomitant]
     Active Substance: DIETARY SUPPLEMENT
     Indication: Product used for unknown indication
     Dosage: 1 DOSAGE FORM, ONCE DAILY (QD)
  5. MACROBID [Concomitant]
     Active Substance: NITROFURANTOIN\NITROFURANTOIN MONOHYDRATE
     Indication: Urinary tract infection
     Dosage: 100 MILLIGRAM, 2X/DAY (BID)
  6. VITAMINS [Concomitant]
     Active Substance: VITAMINS
     Indication: Product used for unknown indication
     Dosage: 1 DOSAGE FORM, ONCE DAILY (QD)
  7. TETANUS TOXOID, REDUCED DIPHTHERIA TOXOID AND ACELLULAR PERTUSSIS VACC [Concomitant]
     Active Substance: TETANUS TOXOID, REDUCED DIPHTHERIA TOXOID AND ACELLULAR PERTUSSIS VACCINE ADSORBED, TDAP
     Indication: Product used for unknown indication
     Dosage: 1 DOSAGE FORM, ONCE DAILY (QD)
  8. TYLENOL PM [Concomitant]
     Active Substance: ACETAMINOPHEN\DIPHENHYDRAMINE
     Indication: Sleep disorder
     Dosage: 1000 MILLIGRAM, ONCE DAILY (QD)
  9. ZANTAC [Concomitant]
     Active Substance: RANITIDINE HYDROCHLORIDE
     Indication: Dyspepsia
     Dosage: 150 MILLIGRAM, 2X/DAY (BID)
  10. ZANTAC [Concomitant]
     Active Substance: RANITIDINE HYDROCHLORIDE
     Dosage: 150 MILLIGRAM, ONCE DAILY (QD)
  11. ZOFRAN [Concomitant]
     Active Substance: ONDANSETRON HYDROCHLORIDE
     Indication: Nausea
     Dosage: 4 MILLIGRAM, ONCE DAILY (QD)
  12. INFLUENZA VIRUS VACCINE [Concomitant]
     Active Substance: INFLUENZA VIRUS VACCINE
     Indication: Product used for unknown indication
     Dosage: 1 SHOT 1 DAY

REACTIONS (4)
  - Coloboma [Unknown]
  - Microcephaly [Unknown]
  - Supernumerary teeth [Unknown]
  - Maternal exposure during pregnancy [Unknown]
